FAERS Safety Report 8763436 (Version 2)
Quarter: 2012Q4

REPORT INFORMATION
  Report Type: Spontaneous
  Country: US (occurrence: None)
  Receive Date: 20120828
  Receipt Date: 20120911
  Transmission Date: 20130627
  Serious: Yes (Hospitalization)
  Sender: FDA-Public Use
  Company Number: UTC-022265

PATIENT
  Age: 73 Year
  Sex: Female
  Weight: 51.8 kg

DRUGS (2)
  1. TYVASO [Suspect]
     Indication: CHRONIC PULMONARY HEART DISEASE
     Route: 055
     Dates: start: 20110623
  2. ADCIRCA (TADALAFIL) (UNKNOWN) [Concomitant]

REACTIONS (1)
  - Rectal haemorrhage [None]
